FAERS Safety Report 17384416 (Version 1)
Quarter: 2020Q1

REPORT INFORMATION
  Report Type: Spontaneous
  Country: US (occurrence: US)
  Receive Date: 20200206
  Receipt Date: 20200206
  Transmission Date: 20200409
  Serious: No
  Sender: FDA-Public Use
  Company Number: US-ABBVIE-19K-163-2839492-00

PATIENT

DRUGS (3)
  1. HUMIRA [Interacting]
     Active Substance: ADALIMUMAB
     Route: 058
  2. ASTRAGALUS (ASTRAGALUS PROPINQUUS) [Interacting]
     Active Substance: ASTRAGALUS PROPINQUUS ROOT\HERBALS
     Indication: PRODUCT USED FOR UNKNOWN INDICATION
     Route: 065
  3. HUMIRA [Suspect]
     Active Substance: ADALIMUMAB
     Indication: PRODUCT USED FOR UNKNOWN INDICATION
     Route: 058

REACTIONS (2)
  - Drug interaction [Unknown]
  - Therapeutic product effect decreased [Not Recovered/Not Resolved]
